FAERS Safety Report 22165578 (Version 2)
Quarter: 2023Q2

REPORT INFORMATION
  Report Type: Spontaneous
  Country: US (occurrence: US)
  Receive Date: 20230403
  Receipt Date: 20230410
  Transmission Date: 20230721
  Serious: No
  Sender: FDA-Public Use
  Company Number: US-AMGEN-USASP2023055759

PATIENT
  Age: 76 Year
  Sex: Female

DRUGS (14)
  1. REPATHA [Suspect]
     Active Substance: EVOLOCUMAB
     Indication: Blood cholesterol increased
     Dosage: 140 MILLIGRAM
     Route: 058
  2. REPATHA [Suspect]
     Active Substance: EVOLOCUMAB
     Dosage: UNK, UNK
     Route: 058
  3. REPATHA [Suspect]
     Active Substance: EVOLOCUMAB
     Route: 058
  4. REPATHA [Suspect]
     Active Substance: EVOLOCUMAB
  5. REPATHA [Suspect]
     Active Substance: EVOLOCUMAB
     Route: 058
  6. REPATHA [Suspect]
     Active Substance: EVOLOCUMAB
     Route: 058
  7. REPATHA [Suspect]
     Active Substance: EVOLOCUMAB
     Route: 058
  8. REPATHA [Suspect]
     Active Substance: EVOLOCUMAB
     Route: 058
  9. REPATHA [Suspect]
     Active Substance: EVOLOCUMAB
     Route: 058
  10. REPATHA [Suspect]
     Active Substance: EVOLOCUMAB
  11. CONTACT [Concomitant]
     Indication: Product used for unknown indication
     Route: 058
  12. CONTACT [Concomitant]
     Route: 058
  13. REPATHA [Concomitant]
     Active Substance: EVOLOCUMAB
     Indication: Product used for unknown indication
     Route: 058
  14. REPATHA [Concomitant]
     Active Substance: EVOLOCUMAB
     Route: 058

REACTIONS (4)
  - Device difficult to use [Unknown]
  - Drug dose omission by device [Unknown]
  - Device difficult to use [Unknown]
  - Therapeutic product effect delayed [Unknown]

NARRATIVE: CASE EVENT DATE: 20230329
